FAERS Safety Report 19812974 (Version 1)
Quarter: 2021Q3

REPORT INFORMATION
  Report Type: Spontaneous
  Country: US (occurrence: US)
  Receive Date: 20210910
  Receipt Date: 20210910
  Transmission Date: 20211014
  Serious: Yes (Other)
  Sender: FDA-Public Use
  Company Number: NVSC2021US201748

PATIENT
  Age: 40 Year
  Sex: Female

DRUGS (2)
  1. PREDNISOLONE. [Suspect]
     Active Substance: PREDNISOLONE
     Indication: EYE INFLAMMATION
  2. PREDNISOLONE. [Suspect]
     Active Substance: PREDNISOLONE
     Indication: RETINAL OEDEMA
     Dosage: 4 TIMES A DAY FOR BOTH EYES
     Route: 065

REACTIONS (3)
  - Product use in unapproved indication [Unknown]
  - Ocular lymphoma [Unknown]
  - B-cell lymphoma [Unknown]
